FAERS Safety Report 23026975 (Version 1)
Quarter: 2023Q4

REPORT INFORMATION
  Report Type: Spontaneous
  Country: US (occurrence: None)
  Receive Date: 20231003
  Receipt Date: 20231003
  Transmission Date: 20240110
  Serious: Yes (Other)
  Sender: FDA-Public Use
  Company Number: None

PATIENT
  Age: 74 Year
  Sex: Female
  Weight: 62.55 kg

DRUGS (7)
  1. IBANDRONATE SODIUM [Suspect]
     Active Substance: IBANDRONATE SODIUM
     Indication: Osteopenia
     Dosage: 1 TABLET ORAL
     Route: 048
     Dates: start: 20230927, end: 20230927
  2. SIMVATATIN [Concomitant]
  3. LISINOPRIL [Concomitant]
     Active Substance: LISINOPRIL
  4. ASPIRIN [Concomitant]
     Active Substance: ASPIRIN
  5. BENADRYL [Concomitant]
     Active Substance: DIPHENHYDRAMINE HYDROCHLORIDE
  6. TYLENOL [Concomitant]
     Active Substance: ACETAMINOPHEN
  7. IBUPROFEN [Concomitant]
     Active Substance: IBUPROFEN

REACTIONS (6)
  - Influenza like illness [None]
  - Decreased appetite [None]
  - Photophobia [None]
  - Eye pain [None]
  - Occipital neuralgia [None]
  - Headache [None]

NARRATIVE: CASE EVENT DATE: 20230914
